FAERS Safety Report 24366866 (Version 1)
Quarter: 2024Q3

REPORT INFORMATION
  Report Type: Other
  Country: US (occurrence: US)
  Receive Date: 20240926
  Receipt Date: 20240926
  Transmission Date: 20241016
  Serious: No
  Sender: NOVA LABORATORIES
  Company Number: US-Nova Laboratories Limited-2162090

PATIENT
  Age: 4 Month
  Sex: Female

DRUGS (1)
  1. PURIXAN [Suspect]
     Active Substance: MERCAPTOPURINE

REACTIONS (1)
  - Off label use [Unknown]
